FAERS Safety Report 24870617 (Version 1)
Quarter: 2025Q1

REPORT INFORMATION
  Report Type: Spontaneous
  Country: IR (occurrence: IR)
  Receive Date: 20250121
  Receipt Date: 20250121
  Transmission Date: 20250408
  Serious: Yes (Hospitalization, Other)
  Sender: RANBAXY
  Company Number: IR-SUN PHARMACEUTICAL INDUSTRIES LTD-2025R1-489375

PATIENT
  Age: 43 Year
  Sex: Female

DRUGS (4)
  1. PREDNISOLONE [Suspect]
     Active Substance: PREDNISOLONE
     Indication: Nephropathy
     Dosage: 5 MILLIGRAM, DAILY
     Route: 065
  2. CELLCEPT [Suspect]
     Active Substance: MYCOPHENOLATE MOFETIL
     Indication: Nephropathy
     Dosage: 1 MILLIGRAM, BID
     Route: 065
  3. HYDROXYCHLOROQUINE [Suspect]
     Active Substance: HYDROXYCHLOROQUINE
     Indication: Nephropathy
     Dosage: 200 MILLIGRAM, DAILY
     Route: 065
  4. ASPIRIN [Suspect]
     Active Substance: ASPIRIN
     Indication: Nephropathy
     Dosage: 80 MILLIGRAM, DAILY
     Route: 065

REACTIONS (1)
  - Strongyloidiasis [Unknown]
